FAERS Safety Report 23713887 (Version 1)
Quarter: 2024Q2

REPORT INFORMATION
  Report Type: Spontaneous
  Country: ES (occurrence: ES)
  Receive Date: 20240405
  Receipt Date: 20240405
  Transmission Date: 20240716
  Serious: Yes (Hospitalization)
  Sender: FDA-Public Use
  Company Number: None

PATIENT
  Age: 48 Year
  Sex: Female

DRUGS (2)
  1. PACLITAXEL [Suspect]
     Active Substance: PACLITAXEL
     Indication: Ovarian neoplasm
     Route: 042
     Dates: start: 20220915, end: 20221123
  2. CARBOPLATIN [Suspect]
     Active Substance: CARBOPLATIN
     Indication: Ovarian neoplasm
     Route: 042
     Dates: start: 20220915, end: 20221123

REACTIONS (2)
  - Gait disturbance [Recovered/Resolved]
  - Axonal and demyelinating polyneuropathy [Recovered/Resolved]

NARRATIVE: CASE EVENT DATE: 20221027
